FAERS Safety Report 11981532 (Version 1)
Quarter: 2016Q1

REPORT INFORMATION
  Report Type: Spontaneous
  Country: US (occurrence: None)
  Receive Date: 20160129
  Receipt Date: 20160129
  Transmission Date: 20160526
  Serious: Yes (Hospitalization)
  Sender: FDA-Public Use
  Company Number: None

PATIENT
  Age: 56 Year
  Sex: Female
  Weight: 170.8 kg

DRUGS (14)
  1. MS CONTIN [Suspect]
     Active Substance: MORPHINE SULFATE
     Indication: PAIN
     Dosage: CHRONIC
     Route: 048
  2. GABAPENTIN. [Suspect]
     Active Substance: GABAPENTIN
  3. SKELAXIN [Suspect]
     Active Substance: METAXALONE
  4. FUROSEMIDE. [Concomitant]
     Active Substance: FUROSEMIDE
  5. CYMBALTA [Suspect]
     Active Substance: DULOXETINE HYDROCHLORIDE
  6. ZOLOFT [Suspect]
     Active Substance: SERTRALINE HYDROCHLORIDE
  7. NAPROXEN. [Concomitant]
     Active Substance: NAPROXEN
  8. WARFARIN [Concomitant]
     Active Substance: WARFARIN
  9. AMITRIPTYLINE [Suspect]
     Active Substance: AMITRIPTYLINE
  10. NORCO [Suspect]
     Active Substance: ACETAMINOPHEN\HYDROCODONE BITARTRATE
     Indication: PAIN
     Dosage: 10/325MG PO?CHRONIC
     Route: 048
  11. LUNESTA [Suspect]
     Active Substance: ESZOPICLONE
  12. OMEPRAZOLE. [Concomitant]
     Active Substance: OMEPRAZOLE
  13. K-DUR [Concomitant]
     Active Substance: POTASSIUM CHLORIDE
  14. LOSARTAN. [Concomitant]
     Active Substance: LOSARTAN

REACTIONS (7)
  - Acute kidney injury [None]
  - Accidental overdose [None]
  - Respiratory failure [None]
  - Encephalopathy [None]
  - Acidosis [None]
  - Toxicologic test abnormal [None]
  - Hypotension [None]

NARRATIVE: CASE EVENT DATE: 20150527
